FAERS Safety Report 17690422 (Version 1)
Quarter: 2020Q2

REPORT INFORMATION
  Report Type: Spontaneous
  Country: US (occurrence: US)
  Receive Date: 20200421
  Receipt Date: 20200421
  Transmission Date: 20200714
  Serious: No
  Sender: FDA-Public Use
  Company Number: US-TEIKOKU PHARMA USA-TPU2020-00195

PATIENT
  Sex: Female
  Weight: 65.83 kg

DRUGS (1)
  1. LIDODERM [Suspect]
     Active Substance: LIDOCAINE
     Indication: ARTHRALGIA
     Dosage: 1 PATCH TO THE RIGHT KNEE
     Route: 061
     Dates: start: 2005

REACTIONS (2)
  - Insurance issue [Not Recovered/Not Resolved]
  - Product size issue [Unknown]
